FAERS Safety Report 5820441-5 (Version None)
Quarter: 2008Q3

REPORT INFORMATION
  Report Type: 
  Country: None (occurrence: None)
  Receive Date: 20080724
  Receipt Date: 20070730
  Transmission Date: 20090109
  Serious: No
  Sender: FDA-Public Use
  Company Number: A0666920A

PATIENT
  Age: 70 Year
  Sex: Female

DRUGS (4)
  1. AVANDIA [Suspect]
     Dosage: 4MG TWICE PER DAY
     Route: 048
     Dates: start: 20050701, end: 20060701
  2. AMARYL [Concomitant]
  3. ANTIHYPERTENSIVE [Concomitant]
  4. THYROID MEDICATION [Concomitant]

REACTIONS (5)
  - CARDIAC MURMUR [None]
  - INSOMNIA [None]
  - LYMPHOEDEMA [None]
  - OEDEMA PERIPHERAL [None]
  - PAIN IN EXTREMITY [None]
